FAERS Safety Report 9242725 (Version 6)
Quarter: 2016Q2

REPORT INFORMATION
  Report Type: Spontaneous
  Country: US (occurrence: US)
  Receive Date: 20130419
  Receipt Date: 20160408
  Transmission Date: 20160815
  Serious: No
  Sender: FDA-Public Use
  Company Number: US-009507513-1304USA008306

PATIENT
  Sex: Male
  Weight: 95.24 kg

DRUGS (2)
  1. PROSCAR [Suspect]
     Active Substance: FINASTERIDE
     Indication: ALOPECIA
     Dosage: UNK, UNKNOWN
     Route: 048
  2. PROPECIA [Suspect]
     Active Substance: FINASTERIDE
     Indication: ALOPECIA
     Dosage: 1 MG, UNKNOWN
     Route: 048
     Dates: start: 200212

REACTIONS (40)
  - Organic erectile dysfunction [Unknown]
  - Temperature intolerance [Unknown]
  - Urinary retention [Unknown]
  - Peyronie^s disease [Not Recovered/Not Resolved]
  - Genital herpes [Unknown]
  - Hair transplant [Unknown]
  - Prostatitis [Not Recovered/Not Resolved]
  - Thyroid disorder [Unknown]
  - Change of bowel habit [Unknown]
  - Nocturia [Unknown]
  - Cognitive disorder [Not Recovered/Not Resolved]
  - Depression [Not Recovered/Not Resolved]
  - Asthenia [Unknown]
  - Insomnia [Unknown]
  - Hair disorder [Unknown]
  - Constipation [Unknown]
  - Haematochezia [Unknown]
  - Infertility male [Unknown]
  - Micturition urgency [Unknown]
  - Sexual dysfunction [Not Recovered/Not Resolved]
  - Fibromyalgia [Not Recovered/Not Resolved]
  - Drug administration error [Unknown]
  - Diplopia [Unknown]
  - Urine flow decreased [Unknown]
  - Urine output decreased [Unknown]
  - Hair transplant [Unknown]
  - Food intolerance [Unknown]
  - Faeces discoloured [Unknown]
  - Prostate infection [Unknown]
  - Benign prostatic hyperplasia [Unknown]
  - Thirst [Unknown]
  - Melaena [Unknown]
  - Diarrhoea [Unknown]
  - Painful ejaculation [Not Recovered/Not Resolved]
  - Skin disorder [Unknown]
  - Dyspnoea [Unknown]
  - Vision blurred [Unknown]
  - Paraesthesia [Unknown]
  - Dyspepsia [Unknown]
  - Dysuria [Unknown]

NARRATIVE: CASE EVENT DATE: 200212
